FAERS Safety Report 7868195-5 (Version None)
Quarter: 2011Q4

REPORT INFORMATION
  Report Type: 
  Country: None (occurrence: None)
  Receive Date: 20111028
  Receipt Date: 20111019
  Transmission Date: 20120403
  Serious: Yes (Other)
  Sender: FDA-Public Use
  Company Number: PHHY2011US93238

PATIENT
  Age: 70 Year
  Sex: Female

DRUGS (3)
  1. FUROSEMIDE [Suspect]
  2. HYDRALAZINE HCL [Suspect]
  3. FERROUS SULFATE TAB [Suspect]

REACTIONS (1)
  - GASTROINTESTINAL TRACT MUCOSAL PIGMENTATION [None]
